APPROVED DRUG PRODUCT: CHOLYBAR
Active Ingredient: CHOLESTYRAMINE
Strength: EQ 4GM RESIN/BAR
Dosage Form/Route: BAR, CHEWABLE;ORAL
Application: A071621 | Product #001
Applicant: PARKE DAVIS DIV WARNER LAMBERT CO
Approved: May 26, 1988 | RLD: No | RS: No | Type: DISCN